FAERS Safety Report 9010537 (Version 1)
Quarter: 2013Q1

REPORT INFORMATION
  Report Type: Spontaneous
  Country: US (occurrence: US)
  Receive Date: 20130109
  Receipt Date: 20130109
  Transmission Date: 20140127
  Serious: Yes (Death)
  Sender: FDA-Public Use
  Company Number: US-ASTRAZENECA-2013SE01236

PATIENT
  Age: 60 Year
  Sex: Male

DRUGS (7)
  1. METFORMIN [Suspect]
     Route: 048
  2. PIOGLITAZONE [Suspect]
     Route: 048
  3. ROSUVASTATIN [Suspect]
     Route: 048
  4. ETODOLAC [Suspect]
     Route: 048
  5. MELOXICAM [Suspect]
     Route: 048
  6. PRAVASTATIN [Suspect]
     Route: 048
  7. SIMVASTATIN [Suspect]
     Route: 048

REACTIONS (2)
  - Cardio-respiratory arrest [Fatal]
  - Toxicity to various agents [Fatal]
